FAERS Safety Report 21312180 (Version 1)
Quarter: 2022Q3

REPORT INFORMATION
  Report Type: Spontaneous
  Country: US (occurrence: None)
  Receive Date: 20220909
  Receipt Date: 20220909
  Transmission Date: 20221027
  Serious: No
  Sender: FDA-Public Use
  Company Number: US-ARIS GLOBAL-202205-0776

PATIENT
  Age: 66 Year
  Sex: Female

DRUGS (7)
  1. OXERVATE [Suspect]
     Active Substance: CENEGERMIN-BKBJ
     Indication: Neurotrophic keratopathy
     Route: 047
     Dates: start: 20220428
  2. BUPROPION [Concomitant]
     Active Substance: BUPROPION
     Dosage: EXTENDED RELEASE FOR 24 HOURS.
  3. PROBIOTIC 20B CELL [Concomitant]
  4. MAGNESIUM [Concomitant]
     Active Substance: MAGNESIUM
  5. CELEBREX [Concomitant]
     Active Substance: CELECOXIB
  6. LORAZEPAM [Concomitant]
     Active Substance: LORAZEPAM
  7. RESTASIS [Concomitant]
     Active Substance: CYCLOSPORINE

REACTIONS (2)
  - Product use issue [Recovered/Resolved]
  - Product dose omission issue [Recovered/Resolved]

NARRATIVE: CASE EVENT DATE: 20220428
